FAERS Safety Report 17068670 (Version 1)
Quarter: 2019Q4

REPORT INFORMATION
  Report Type: Spontaneous
  Country: US (occurrence: US)
  Receive Date: 20191123
  Receipt Date: 20191123
  Transmission Date: 20200122
  Serious: Yes (Life-Threatening, Hospitalization)
  Sender: FDA-Public Use
  Company Number: US-TEVA-2019-US-1141863

PATIENT
  Sex: Male

DRUGS (2)
  1. AMIODARONE HYDROCHLORIDE. [Suspect]
     Active Substance: AMIODARONE HYDROCHLORIDE
     Indication: ATRIAL FIBRILLATION
     Route: 048
     Dates: end: 201602
  2. AMIODARONE HYDROCHLORIDE TEVA [Suspect]
     Active Substance: AMIODARONE HYDROCHLORIDE
     Indication: ATRIAL FIBRILLATION
     Route: 048
     Dates: end: 201602

REACTIONS (12)
  - Pulmonary toxicity [Unknown]
  - Dependence on oxygen therapy [Unknown]
  - Off label use [Unknown]
  - Hypoxia [Unknown]
  - Interstitial lung disease [Unknown]
  - Dizziness [Unknown]
  - Oxygen saturation decreased [Unknown]
  - Dyspnoea [Unknown]
  - Pulmonary fibrosis [Unknown]
  - Heart rate increased [Unknown]
  - Walking aid user [Unknown]
  - Cough [Unknown]

NARRATIVE: CASE EVENT DATE: 201602
